FAERS Safety Report 20239782 (Version 2)
Quarter: 2022Q1

REPORT INFORMATION
  Report Type: Spontaneous
  Country: US (occurrence: US)
  Receive Date: 20211228
  Receipt Date: 20220202
  Transmission Date: 20220423
  Serious: No
  Sender: FDA-Public Use
  Company Number: US-CELGENE-USA-20211206550

PATIENT
  Age: 56 Year
  Sex: Female
  Weight: 44.492 kg

DRUGS (2)
  1. POMALYST [Suspect]
     Active Substance: POMALIDOMIDE
     Indication: Plasma cell myeloma
     Dosage: 4
     Route: 048
     Dates: start: 20211115
  2. POMALYST [Suspect]
     Active Substance: POMALIDOMIDE
     Dosage: 2
     Route: 048
     Dates: start: 20211115

REACTIONS (5)
  - Bronchitis [Unknown]
  - Laboratory test abnormal [Unknown]
  - Headache [Unknown]
  - Abdominal pain upper [Unknown]
  - Pyrexia [Unknown]

NARRATIVE: CASE EVENT DATE: 20211101
